FAERS Safety Report 7642505-6 (Version None)
Quarter: 2011Q3

REPORT INFORMATION
  Report Type: 
  Country: None (occurrence: None)
  Receive Date: 20110728
  Receipt Date: 20110726
  Transmission Date: 20111222
  Serious: Yes (Hospitalization, Other)
  Sender: FDA-Public Use
  Company Number: US-PFIZER INC-2011045507

PATIENT
  Sex: Female

DRUGS (3)
  1. VALIUM [Concomitant]
     Indication: PAIN
     Dosage: UNK,
  2. BACLOFEN [Concomitant]
     Indication: MULTIPLE SCLEROSIS
     Dosage: UNK,
  3. CHANTIX [Suspect]
     Indication: SMOKING CESSATION THERAPY
     Dosage: UNK,
     Dates: start: 20080101, end: 20090301

REACTIONS (9)
  - INTENTIONAL OVERDOSE [None]
  - COMA [None]
  - CONVULSION [None]
  - ANXIETY [None]
  - SUICIDE ATTEMPT [None]
  - PARANOIA [None]
  - DEPRESSION [None]
  - MULTIPLE SCLEROSIS [None]
  - MANIA [None]
